FAERS Safety Report 9462517 (Version 2)
Quarter: 2013Q3

REPORT INFORMATION
  Report Type: Spontaneous
  Country: US (occurrence: None)
  Receive Date: 20130813
  Receipt Date: 20130826
  Transmission Date: 20140515
  Serious: Yes (Death, Hospitalization)
  Sender: FDA-Public Use
  Company Number: 2013-1127

PATIENT
  Age: 75 Year
  Sex: Male

DRUGS (6)
  1. KYPROLIS [Suspect]
     Indication: PLASMA CELL MYELOMA
     Route: 042
     Dates: start: 201305, end: 201307
  2. CALCITROL (ERGOCALCIFEROL) (ERGOCALCIFEROL) [Concomitant]
  3. SIMVASTATIN (SIMVASTATIN) (SIMVASTATIN) [Concomitant]
  4. LYRICA (PREGABALIN) (PREGABALIN) [Concomitant]
  5. FISH OIL (FISH OIL) (FISH OIL) [Concomitant]
  6. ASPIRIN (ACETYSALICYLIC ACID) (ACETYLSALICYLIC ACID) [Concomitant]

REACTIONS (7)
  - Haemoglobin decreased [None]
  - Blood creatinine increased [None]
  - Dialysis [None]
  - Drug ineffective [None]
  - Anaemia [None]
  - Renal failure [None]
  - Plasma cell myeloma [None]
